FAERS Safety Report 8956412 (Version 3)
Quarter: 2013Q2

REPORT INFORMATION
  Report Type: Report from Study
  Country: US (occurrence: US)
  Receive Date: 20121210
  Receipt Date: 20130513
  Transmission Date: 20140414
  Serious: Yes (Other)
  Sender: FDA-Public Use
  Company Number: US-ASTRAZENECA-2012SE90679

PATIENT
  Age: 75 Year
  Sex: Male

DRUGS (2)
  1. CRESTOR [Suspect]
     Route: 048
  2. LISINOPRIL [Suspect]
     Route: 048

REACTIONS (4)
  - Skin exfoliation [Unknown]
  - Erythema [Unknown]
  - Drug hypersensitivity [Unknown]
  - Discomfort [Unknown]
